FAERS Safety Report 22183719 (Version 1)
Quarter: 2023Q2

REPORT INFORMATION
  Report Type: Spontaneous
  Country: JP (occurrence: JP)
  Receive Date: 20230406
  Receipt Date: 20230406
  Transmission Date: 20230721
  Serious: Yes (Other)
  Sender: FDA-Public Use
  Company Number: JP-Vifor (International) Inc.-VIT-2023-02343

PATIENT
  Sex: Female

DRUGS (4)
  1. TAVNEOS [Suspect]
     Active Substance: AVACOPAN
     Indication: Microscopic polyangiitis
     Dosage: UNK, INDUCTION OF REMISSION
     Route: 065
     Dates: start: 202303, end: 202303
  2. TAVNEOS [Suspect]
     Active Substance: AVACOPAN
     Dosage: UNK, INDUCTION OF REMISSION
     Route: 065
     Dates: start: 2023
  3. PREDNISOLONE [Concomitant]
     Active Substance: PREDNISOLONE
     Indication: Microscopic polyangiitis
     Dosage: UNK
     Route: 065
     Dates: start: 202303
  4. RITUXAN [Concomitant]
     Active Substance: RITUXIMAB
     Indication: Microscopic polyangiitis
     Dosage: UNK (GENETICAL RECOMBINATION)
     Route: 042
     Dates: start: 202303

REACTIONS (1)
  - Posterior reversible encephalopathy syndrome [Recovered/Resolved]

NARRATIVE: CASE EVENT DATE: 20230301
